FAERS Safety Report 8633153 (Version 2)
Quarter: 2012Q4

REPORT INFORMATION
  Report Type: 
  Country: AT (occurrence: AT)
  Receive Date: 20120625
  Receipt Date: 20120828
  Transmission Date: 20130627
  Serious: Yes (Hospitalization)
  Sender: FDA-Public Use
  Company Number: AT-PFIZER INC-2012149906

PATIENT
  Age: 85 Year
  Sex: Female
  Weight: 49 kg

DRUGS (3)
  1. PANTOPRAZOLE [Suspect]
     Dosage: 20 mg, 1x/day
     Route: 048
  2. AMIODARONE [Suspect]
     Dosage: 2 DF, 3x/day (1200mg daily)
     Dates: start: 20120529, end: 20120601
  3. ACETYLSALICYLIC ACID [Suspect]
     Dosage: 100 mg, 1x/day

REACTIONS (2)
  - Gastritis [Recovering/Resolving]
  - Liver disorder [Recovering/Resolving]
